FAERS Safety Report 7000100-6 (Version None)
Quarter: 2010Q3

REPORT INFORMATION
  Report Type: 
  Country: None (occurrence: None)
  Receive Date: 20100920
  Receipt Date: 20080411
  Transmission Date: 20110219
  Serious: Yes (Other)
  Sender: FDA-Public Use
  Company Number: US-ASTRAZENECA-2007UW21473

PATIENT
  Age: 335 Month
  Sex: Female
  Weight: 104.3 kg

DRUGS (10)
  1. SEROQUEL [Suspect]
     Indication: DEPRESSION
     Dosage: 100-600 MG
     Route: 048
     Dates: start: 19980601, end: 20071101
  2. SEROQUEL [Suspect]
     Indication: BIPOLAR DISORDER
     Dosage: 100-600 MG
     Route: 048
     Dates: start: 19980601, end: 20071101
  3. SEROQUEL [Suspect]
     Indication: SCHIZOPHRENIA
     Dosage: 100-600 MG
     Route: 048
     Dates: start: 19980601, end: 20071101
  4. SEROQUEL [Suspect]
     Dosage: 75-1000 MG
     Route: 048
     Dates: start: 20020603
  5. SEROQUEL [Suspect]
     Dosage: 75-1000 MG
     Route: 048
     Dates: start: 20020603
  6. SEROQUEL [Suspect]
     Dosage: 75-1000 MG
     Route: 048
     Dates: start: 20020603
  7. NEURONTIN [Concomitant]
     Route: 048
     Dates: start: 20030806
  8. EFFEXOR [Concomitant]
     Route: 048
     Dates: start: 20030806
  9. PREDNISONE [Concomitant]
     Dosage: 20 MG 3 TAB DAILY
     Route: 048
     Dates: start: 20060625
  10. GEODON [Concomitant]
     Route: 048
     Dates: start: 20041112

REACTIONS (4)
  - DIABETES MELLITUS [None]
  - DIABETES MELLITUS INADEQUATE CONTROL [None]
  - HYPERGLYCAEMIA [None]
  - TYPE 2 DIABETES MELLITUS [None]
